FAERS Safety Report 4857826-X (Version None)
Quarter: 2005Q4

REPORT INFORMATION
  Report Type: 
  Country: None (occurrence: None)
  Receive Date: 20051219
  Receipt Date: 20050408
  Transmission Date: 20060501
  Serious: No
  Sender: FDA-Public Use
  Company Number: US-GLAXOSMITHKLINE-A0553349A

PATIENT
  Age: 59 Year
  Sex: Female

DRUGS (1)
  1. NICODERM CQ [Suspect]

REACTIONS (4)
  - APPLICATION SITE ERYTHEMA [None]
  - BLOOD PRESSURE INCREASED [None]
  - CONDITION AGGRAVATED [None]
  - TENSION [None]
